FAERS Safety Report 4519525-3 (Version None)
Quarter: 2004Q4

REPORT INFORMATION
  Report Type: 
  Country: None (occurrence: None)
  Receive Date: 20041202
  Receipt Date: 20041124
  Transmission Date: 20050328
  Serious: Yes (Death, Life-Threatening, Hospitalization)
  Sender: FDA-Public Use
  Company Number: DEU-2004-0001131

PATIENT
  Age: 90 Year
  Sex: Male
  Weight: 80 kg

DRUGS (3)
  1. PALLADONE [Suspect]
     Indication: CANCER PAIN
     Dosage: 4 MG, BID, ORAL
     Route: 048
     Dates: start: 20040908, end: 20040916
  2. LACTULOSE [Concomitant]
  3. METAMIZOLE SODIUM [Concomitant]

REACTIONS (4)
  - CARDIOPULMONARY FAILURE [None]
  - DIARRHOEA [None]
  - PNEUMONIA [None]
  - SUBILEUS [None]
